FAERS Safety Report 25645779 (Version 6)
Quarter: 2025Q3

REPORT INFORMATION
  Report Type: Spontaneous
  Country: US (occurrence: US)
  Receive Date: 20250805
  Receipt Date: 20250820
  Transmission Date: 20251020
  Serious: Yes (Other)
  Sender: IPSEN BIOPHARMACEUTICALS, INC.
  Company Number: US-IPSEN Group, Research and Development-2025-19088

PATIENT
  Age: 46 Year
  Sex: Female

DRUGS (2)
  1. DYSPORT [Suspect]
     Active Substance: ABOBOTULINUMTOXINA
     Indication: Skin cosmetic procedure
  2. DYSPORT [Suspect]
     Active Substance: ABOBOTULINUMTOXINA
     Indication: Off label use

REACTIONS (7)
  - Facial paralysis [Unknown]
  - Scleral disorder [Unknown]
  - Eyelid ptosis [Unknown]
  - Off label use [Unknown]
  - Foreign body sensation in eyes [Unknown]
  - Seborrhoea [Unknown]
  - Conjunctival oedema [Unknown]
